FAERS Safety Report 7559577-X (Version None)
Quarter: 2011Q2

REPORT INFORMATION
  Report Type: 
  Country: None (occurrence: None)
  Receive Date: 20110621
  Receipt Date: 20110617
  Transmission Date: 20111010
  Serious: Yes (Life-Threatening, Other)
  Sender: FDA-Public Use
  Company Number: US-ASTRAZENECA-2011SE37114

PATIENT
  Age: 742 Month
  Sex: Male
  Weight: 90.7 kg

DRUGS (4)
  1. OMEPRAZOLE [Suspect]
     Dosage: GENERIC
     Route: 048
  2. ANTI NAUSEA PILL [Concomitant]
     Dosage: WHEN NEEDED
  3. LANSOPRAZOLE [Suspect]
     Dosage: GENERIC
     Route: 065
  4. NEXIUM [Suspect]
     Indication: GASTROOESOPHAGEAL REFLUX DISEASE
     Route: 048
     Dates: start: 20100101

REACTIONS (3)
  - DRUG INEFFECTIVE [None]
  - GASTRIC CANCER STAGE IV [None]
  - CHEMOTHERAPY [None]
